APPROVED DRUG PRODUCT: VORICONAZOLE
Active Ingredient: VORICONAZOLE
Strength: 200MG/5ML
Dosage Form/Route: FOR SUSPENSION;ORAL
Application: A216805 | Product #001 | TE Code: AB
Applicant: ZHEJIANG POLY PHARM CO LTD
Approved: Jan 2, 2024 | RLD: No | RS: No | Type: RX